FAERS Safety Report 17611961 (Version 2)
Quarter: 2021Q2

REPORT INFORMATION
  Report Type: Spontaneous
  Country: US (occurrence: US)
  Receive Date: 20200401
  Receipt Date: 20210625
  Transmission Date: 20210716
  Serious: Yes (Hospitalization, Other)
  Sender: FDA-Public Use
  Company Number: US-TEVA-2020-US-1214992

PATIENT
  Age: 66 Year
  Sex: Female

DRUGS (14)
  1. IRON INFUSION [Concomitant]
     Active Substance: IRON
     Route: 065
  2. OLMESARTAN [Concomitant]
     Active Substance: OLMESARTAN
     Dosage: 40 MILLIGRAM DAILY;
     Route: 048
  3. HYDROMORPHONE [Concomitant]
     Active Substance: HYDROMORPHONE
     Indication: PAIN
     Dosage: 0.25 MG. 0.25 ML IV PUSH, Q20MIN, PRN: PAIN. MODERATE
     Route: 042
  4. NALBUPHINE [Concomitant]
     Active Substance: NALBUPHINE
     Indication: PRURITUS
     Dosage: 5 MG. 0.5 ML, IV PUSH. Q8H , PRN: ITCHING
     Route: 042
  5. VALSARTAN W/HYDROCHLOROTHIAZIDE TEVA [Suspect]
     Active Substance: HYDROCHLOROTHIAZIDE\VALSARTAN
     Indication: HYPERTENSION
     Dosage: 320?25 MG
     Route: 065
     Dates: start: 201606, end: 201607
  6. VALSARTAN?HCTZ MACLEODS PHARMA [Suspect]
     Active Substance: HYDROCHLOROTHIAZIDE\VALSARTAN
     Indication: HYPERTENSION
     Dosage: 320?25 MG
     Route: 065
     Dates: start: 201608, end: 201609
  7. OXYCODONE [Concomitant]
     Active Substance: OXYCODONE
     Indication: PAIN
     Dosage: 5 MG?10 MG, 1 TAB, PO, Q4H, PRN: PAIN, MILD?MODERATE
     Route: 048
  8. NALOXONE [Concomitant]
     Active Substance: NALOXONE
     Indication: SEDATION COMPLICATION
     Dosage: 1 ML, IV PUSH, PRN, PRN: OVERSEDATION
     Route: 042
  9. VALSARTAN W/HYDROCHLOROTHIAZIDE TEVA [Suspect]
     Active Substance: HYDROCHLOROTHIAZIDE\VALSARTAN
     Dosage: 320?25 MG
     Route: 065
     Dates: start: 2017, end: 2018
  10. VALSARTAN?HCTZ AUROBINDO [Suspect]
     Active Substance: HYDROCHLOROTHIAZIDE\VALSARTAN
     Indication: HYPERTENSION
     Dosage: 320?25 MG
     Route: 065
     Dates: start: 201603, end: 201608
  11. AMLODIPINE [Concomitant]
     Active Substance: AMLODIPINE BESYLATE
     Dosage: 10 MILLIGRAM DAILY;
     Route: 048
  12. OXYCODONE AND ACETAMINOPHEN [Concomitant]
     Active Substance: ACETAMINOPHEN\OXYCODONE HYDROCHLORIDE
     Indication: PAIN
     Dosage: PERCOCET 7.5/325 ORAL TABLET
     Route: 048
  13. ERGOCALCIFEROL. [Concomitant]
     Active Substance: ERGOCALCIFEROL
     Dosage: 7142.8571 IU (INTERNATIONAL UNIT) DAILY; 1 CAPSULE(S) BY MOUTH
     Route: 048
  14. PROMETHAZINE [Concomitant]
     Active Substance: PROMETHAZINE HYDROCHLORIDE
     Indication: NAUSEA
     Dosage: 25 MG, 1 ML, TOP, Q6H, PRN: NAUSEA
     Route: 065

REACTIONS (2)
  - Colon cancer [Recovered/Resolved]
  - Gastrooesophageal reflux disease [Unknown]
